FAERS Safety Report 15783480 (Version 2)
Quarter: 2019Q1

REPORT INFORMATION
  Report Type: Spontaneous
  Country: IL (occurrence: IL)
  Receive Date: 20190102
  Receipt Date: 20190213
  Transmission Date: 20190417
  Serious: Yes (Hospitalization)
  Sender: FDA-Public Use
  Company Number: IL-SA-2018SA397601

PATIENT
  Age: 92 Year
  Sex: Female

DRUGS (1)
  1. AMARYL [Suspect]
     Active Substance: GLIMEPIRIDE
     Indication: DIABETES MELLITUS
     Dosage: UNK

REACTIONS (5)
  - Fall [Unknown]
  - Hip fracture [Unknown]
  - Hypoglycaemia [Unknown]
  - Unresponsive to stimuli [Unknown]
  - Asthenia [Unknown]
